FAERS Safety Report 12235742 (Version 3)
Quarter: 2016Q2

REPORT INFORMATION
  Report Type: Spontaneous
  Country: US (occurrence: US)
  Receive Date: 20160404
  Receipt Date: 20160629
  Transmission Date: 20160815
  Serious: No
  Sender: FDA-Public Use
  Company Number: US-PFIZER INC-2016153376

PATIENT
  Age: 60 Year
  Sex: Female
  Weight: 94 kg

DRUGS (8)
  1. TOPIRAMATE. [Concomitant]
     Active Substance: TOPIRAMATE
     Dosage: 25 MG, 2X/DAY (1 YR WITH LYRICA)
  2. LYRICA [Concomitant]
     Active Substance: PREGABALIN
     Dosage: 150 MG, 2X/DAY
  3. ACETAMINOPHEN\HYDROCODONE BITARTRATE [Concomitant]
     Active Substance: ACETAMINOPHEN\HYDROCODONE BITARTRATE
     Indication: BACK PAIN
     Dosage: UNK( HYDROCODONE:5, PARACETAMOL:325) (3X A MONTH) (ONCE IN A WHILE)
  4. VITAMIN C [Concomitant]
     Active Substance: ASCORBIC ACID
     Dosage: 100 MG, 2X/DAY (1 YEARS)
  5. MAGNESIUM [Concomitant]
     Active Substance: MAGNESIUM
     Dosage: UNK, 2X/DAY (1 YR WITH LYRICA)
  6. GABAPENTIN. [Suspect]
     Active Substance: GABAPENTIN
     Indication: PAIN
     Dosage: 2 DF, UNK
  7. OMEGA-3 + VIT D3 [Concomitant]
     Dosage: UNK (COLECALCIFEROL:400 MG, FISH OIL:1000 MG))
  8. VITAMIN D [Concomitant]
     Active Substance: CHOLECALCIFEROL
     Dosage: 2000 IU, 2X/DAY

REACTIONS (4)
  - Insomnia [Unknown]
  - Product use issue [Unknown]
  - Feeling abnormal [Recovered/Resolved]
  - Nightmare [Recovered/Resolved]
